FAERS Safety Report 6028869-8 (Version None)
Quarter: 2008Q4

REPORT INFORMATION
  Report Type: 
  Country: None (occurrence: None)
  Receive Date: 20081222
  Receipt Date: 20081028
  Transmission Date: 20090506
  Serious: No
  Sender: FDA-Public Use
  Company Number: ALL1-2008-03135

PATIENT
  Age: 8 Year
  Sex: Male
  Weight: 25.4 kg

DRUGS (2)
  1. VYVANSE [Suspect]
     Indication: ATTENTION DEFICIT/HYPERACTIVITY DISORDER
     Dosage: 50 MG, 1X/DAY:QD, ORAL
     Route: 047
     Dates: start: 20070101
  2. VYVANSE [Suspect]
     Indication: OBSESSIVE-COMPULSIVE DISORDER
     Dosage: 50 MG, 1X/DAY:QD, ORAL
     Route: 047
     Dates: start: 20070101

REACTIONS (3)
  - DISTURBANCE IN SOCIAL BEHAVIOUR [None]
  - OFF LABEL USE [None]
  - PRODUCT QUALITY ISSUE [None]
